FAERS Safety Report 5338281-2 (Version None)
Quarter: 2007Q2

REPORT INFORMATION
  Report Type: 
  Country: None (occurrence: None)
  Receive Date: 20070327
  Receipt Date: 20070213
  Transmission Date: 20071010
  Serious: No
  Sender: FDA-Public Use
  Company Number: 237062

PATIENT
  Sex: Female

DRUGS (1)
  1. AVASTIN [Suspect]
     Indication: DRUG USE FOR UNKNOWN INDICATION
     Dosage: INTRAVITREAL
     Dates: start: 20060801

REACTIONS (1)
  - EYE PAIN [None]
